FAERS Safety Report 23744577 (Version 3)
Quarter: 2025Q3

REPORT INFORMATION
  Report Type: Spontaneous
  Country: EU (occurrence: EU)
  Receive Date: 20240415
  Receipt Date: 20250811
  Transmission Date: 20251021
  Serious: Yes (Life-Threatening, Hospitalization, Other)
  Sender: MYLAN
  Company Number: EU-MYLANLABS-2016M1036326

PATIENT
  Age: 34 Year
  Sex: Male

DRUGS (4)
  1. PREDNISONE [Suspect]
     Active Substance: PREDNISONE
     Indication: Immunosuppressant drug therapy
     Dosage: 25 MILLIGRAM, QD (25 MG, DAILY)
  2. MYCOPHENOLATE MOFETIL [Suspect]
     Active Substance: MYCOPHENOLATE MOFETIL
     Indication: Immunosuppressant drug therapy
     Dosage: 750 MILLIGRAM, BID (750 MG, TWO TIMES A DAY)
  3. MYCOPHENOLATE MOFETIL [Suspect]
     Active Substance: MYCOPHENOLATE MOFETIL
     Dosage: 1500 MILLIGRAM, QD
  4. TACROLIMUS [Suspect]
     Active Substance: TACROLIMUS
     Indication: Immunosuppressant drug therapy
     Dosage: 6 MILLIGRAM, BID (6 MG, TWO TIMES A DAY)

REACTIONS (7)
  - Cryptosporidiosis infection [Recovered/Resolved]
  - Acute kidney injury [Recovered/Resolved]
  - Abdominal pain [Recovered/Resolved]
  - Glomerular filtration rate decreased [Unknown]
  - Diarrhoea [Recovered/Resolved]
  - Weight decreased [Recovered/Resolved]
  - Gastroenteritis cryptosporidial [Recovered/Resolved]

NARRATIVE: CASE EVENT DATE: 20140101
